FAERS Safety Report 8851677 (Version 2)
Quarter: 2012Q4

REPORT INFORMATION
  Report Type: 
  Country: JP (occurrence: JP)
  Receive Date: 20121022
  Receipt Date: 20121205
  Transmission Date: 20130627
  Serious: Yes (Other)
  Sender: FDA-Public Use
  Company Number: JP-009507513-1210JPN005129

PATIENT
  Age: 73 Year
  Sex: Male
  Weight: 60 kg

DRUGS (12)
  1. PEGINTRON [Suspect]
     Indication: CHRONIC HEPATITIS C
     Dosage: 1.3 Microgram per kilogram, qw
     Route: 058
     Dates: start: 20120803
  2. PEGINTRON [Suspect]
     Dosage: 1.0 Microgram per kilogram, qw
     Route: 058
     Dates: start: 20120905
  3. PEGINTRON [Suspect]
     Dosage: UNK UNK, qw
     Route: 058
     Dates: start: 20120926
  4. REBETOL [Suspect]
     Indication: CHRONIC HEPATITIS C
     Dosage: 600 mg, qd
     Route: 048
     Dates: start: 20120803, end: 20120809
  5. REBETOL [Suspect]
     Dosage: 400 mg, qd
     Route: 048
     Dates: start: 20120810, end: 20120813
  6. REBETOL [Suspect]
     Dosage: 200 mg, qd
     Route: 048
     Dates: start: 20120814, end: 20120821
  7. REBETOL [Suspect]
     Dosage: 400 mg, qd
     Route: 048
     Dates: start: 20120822
  8. TELAVIC [Suspect]
     Indication: CHRONIC HEPATITIS C
     Dosage: 1500 mg, qd
     Route: 048
     Dates: start: 20120803
  9. ANTEBATE [Concomitant]
     Indication: CHRONIC HEPATITIS C
     Dosage: UNK
     Route: 061
     Dates: start: 20120805
  10. ALLEGRA [Concomitant]
     Indication: CHRONIC HEPATITIS C
     Dosage: 60 mg, qd, formulation : POR
     Route: 048
     Dates: start: 20120806, end: 20120815
  11. GASTER [Concomitant]
     Indication: CHRONIC HEPATITIS C
     Dosage: 20 mg, qd, Formulation:POR
     Route: 048
     Dates: start: 20120905
  12. GASMOTIN [Concomitant]
     Indication: ABDOMINAL DISTENSION
     Dosage: 5 mg, qd
     Route: 048
     Dates: start: 20121009

REACTIONS (1)
  - Platelet count decreased [Recovering/Resolving]
